FAERS Safety Report 14151600 (Version 2)
Quarter: 2019Q4

REPORT INFORMATION
  Report Type: Spontaneous
  Country: US (occurrence: US)
  Receive Date: 20171102
  Receipt Date: 20191107
  Transmission Date: 20200122
  Serious: Yes (Hospitalization)
  Sender: FDA-Public Use
  Company Number: US-ROCHE-2013275

PATIENT
  Sex: Female

DRUGS (1)
  1. RITUXAN [Suspect]
     Active Substance: RITUXIMAB
     Indication: MULTIPLE SCLEROSIS
     Route: 042

REACTIONS (6)
  - Intentional product use issue [Unknown]
  - Amnesia [Unknown]
  - Off label use [Unknown]
  - Gait inability [Unknown]
  - Ill-defined disorder [Unknown]
  - Immobile [Unknown]
